FAERS Safety Report 12657922 (Version 1)
Quarter: 2016Q3

REPORT INFORMATION
  Report Type: Report from Study
  Country: DE (occurrence: DE)
  Receive Date: 20160816
  Receipt Date: 20160816
  Transmission Date: 20161109
  Serious: Yes (Hospitalization)
  Sender: FDA-Public Use
  Company Number: DE-TEVA-683430GER

PATIENT
  Age: 36 Year
  Sex: Female
  Weight: 70 kg

DRUGS (3)
  1. CARBOPLATIN. [Suspect]
     Active Substance: CARBOPLATIN
     Indication: BREAST CANCER FEMALE
     Dosage: LAST DOSE PRIOR TO SAE:13-JUL-2016
     Route: 042
     Dates: start: 20160323, end: 20160720
  2. MYOCET [Suspect]
     Active Substance: DOXORUBICIN
     Indication: BREAST CANCER FEMALE
     Dosage: LAST DOSE PRIOR TO SAE: 13-JUL-2016
     Route: 042
     Dates: start: 20160323, end: 20160720
  3. PACLITAXEL. [Suspect]
     Active Substance: PACLITAXEL
     Indication: BREAST CANCER FEMALE
     Dosage: LAST DOSE PRIOR TO SAE:13-JUL-2016
     Route: 042
     Dates: start: 20160323, end: 20160720

REACTIONS (2)
  - Febrile neutropenia [Recovered/Resolved]
  - Pneumonia [Recovered/Resolved]

NARRATIVE: CASE EVENT DATE: 20160721
